FAERS Safety Report 4349060-7 (Version None)
Quarter: 2004Q2

REPORT INFORMATION
  Report Type: 
  Country: None (occurrence: None)
  Receive Date: 20040427
  Receipt Date: 20040427
  Transmission Date: 20050107
  Serious: Yes (Hospitalization)
  Sender: FDA-Public Use
  Company Number: None

PATIENT
  Sex: Female
  Weight: 87.9978 kg

DRUGS (8)
  1. CRESTOR [Suspect]
     Indication: CORONARY ARTERY DISEASE
     Dosage: 40 MG PO QHS
     Route: 048
     Dates: start: 20040101, end: 20040417
  2. CRESTOR [Suspect]
     Indication: CORONARY ARTERY SURGERY
     Dosage: 40 MG PO QHS
     Route: 048
     Dates: start: 20040101, end: 20040417
  3. CRESTOR [Suspect]
     Indication: HYPERLIPIDAEMIA
     Dosage: 40 MG PO QHS
     Route: 048
     Dates: start: 20040101, end: 20040417
  4. AVANDAMET [Concomitant]
  5. NOVOLOG [Concomitant]
  6. SYNTHOID [Concomitant]
  7. TOPROL-XL [Concomitant]
  8. ALTACE [Concomitant]

REACTIONS (5)
  - ASTHENIA [None]
  - BLOOD CREATINE PHOSPHOKINASE INCREASED [None]
  - BLOOD CREATININE INCREASED [None]
  - BLOOD UREA INCREASED [None]
  - FATIGUE [None]
